FAERS Safety Report 19838682 (Version 1)
Quarter: 2021Q3

REPORT INFORMATION
  Report Type: Spontaneous
  Country: US (occurrence: US)
  Receive Date: 20210915
  Receipt Date: 20210915
  Transmission Date: 20211014
  Serious: Yes (Life-Threatening, Other)
  Sender: FDA-Public Use
  Company Number: None

PATIENT
  Age: 69 Year
  Sex: Female
  Weight: 54 kg

DRUGS (10)
  1. PASSION FLOWER [Concomitant]
     Active Substance: HERBALS\HOMEOPATHICS\PASSIFLORA INCARNATA FLOWER
  2. ARICEPT [Concomitant]
     Active Substance: DONEPEZIL HYDROCHLORIDE
  3. MELATONIN [Concomitant]
     Active Substance: MELATONIN
  4. RISPERDAL [Suspect]
     Active Substance: RISPERIDONE
     Indication: DELUSION
     Route: 048
  5. RISPERDAL [Suspect]
     Active Substance: RISPERIDONE
     Indication: DEMENTIA
     Route: 048
  6. EXELON [Concomitant]
     Active Substance: RIVASTIGMINE TARTRATE
  7. ABILIFY [Suspect]
     Active Substance: ARIPIPRAZOLE
     Indication: DELUSION
     Route: 048
  8. OXYCODONE [Concomitant]
     Active Substance: OXYCODONE
  9. LEMON BALM [Concomitant]
     Active Substance: HERBALS\MELISSA OFFICINALIS
  10. ABILIFY [Suspect]
     Active Substance: ARIPIPRAZOLE
     Indication: DEMENTIA
     Route: 048

REACTIONS (5)
  - Insomnia [None]
  - Muscular weakness [None]
  - Anxiety [None]
  - Malaise [None]
  - Delusion [None]

NARRATIVE: CASE EVENT DATE: 20210914
